FAERS Safety Report 9678939 (Version 1)
Quarter: 2013Q4

REPORT INFORMATION
  Report Type: Spontaneous
  Country: NZ (occurrence: NZ)
  Receive Date: 20131108
  Receipt Date: 20131108
  Transmission Date: 20140711
  Serious: Yes (Hospitalization, Other)
  Sender: FDA-Public Use
  Company Number: NZ-ASTRAZENECA-2013SE80543

PATIENT
  Sex: Male

DRUGS (1)
  1. BRILINTA [Suspect]
     Route: 048
     Dates: start: 2013

REACTIONS (9)
  - Syncope [Unknown]
  - Acute lung injury [Unknown]
  - Chest pain [Unknown]
  - Troponin increased [Unknown]
  - Thrombosis in device [Unknown]
  - Coronary artery thrombosis [Unknown]
  - Tachyarrhythmia [Unknown]
  - Ischaemia [Unknown]
  - Malaise [Unknown]
